FAERS Safety Report 25120169 (Version 2)
Quarter: 2025Q4

REPORT INFORMATION
  Report Type: Spontaneous
  Country: CA (occurrence: CA)
  Receive Date: 20250325
  Receipt Date: 20251124
  Transmission Date: 20260118
  Serious: Yes (Other)
  Sender: MYLAN
  Company Number: CA-MYLANLABS-2025M1025283

PATIENT
  Age: 41 Year
  Sex: Male
  Weight: 140 kg

DRUGS (39)
  1. AMLODIPINE BESYLATE [Suspect]
     Active Substance: AMLODIPINE BESYLATE
     Indication: Secondary progressive multiple sclerosis
     Dosage: 10 MILLIGRAM
  2. AMLODIPINE BESYLATE [Suspect]
     Active Substance: AMLODIPINE BESYLATE
     Dosage: 10 MILLIGRAM
  3. GABAPENTIN [Suspect]
     Active Substance: GABAPENTIN
     Indication: Product used for unknown indication
     Dosage: 100 MILLIGRAM
  4. BACLOFEN [Suspect]
     Active Substance: BACLOFEN
     Indication: Product used for unknown indication
     Dosage: 10 MILLIGRAM
  5. BACLOFEN [Suspect]
     Active Substance: BACLOFEN
     Dosage: 30 MILLIGRAM, TID (3 EVERY ONE DAY)
  6. DOXEPIN HYDROCHLORIDE [Suspect]
     Active Substance: DOXEPIN HYDROCHLORIDE
     Indication: Product used for unknown indication
     Dosage: 6 MILLIGRAM
  7. BACLOFEN [Suspect]
     Active Substance: BACLOFEN
     Indication: Product used for unknown indication
     Dosage: 30 MILLIGRAM, TID (3 EVERY 1 DAYS)
  8. BISOPROLOL [Suspect]
     Active Substance: BISOPROLOL
     Indication: Secondary progressive multiple sclerosis
     Dosage: UNK
  9. BISOPROLOL [Suspect]
     Active Substance: BISOPROLOL
     Dosage: UNK
  10. BISOPROLOL FUMARATE\HYDROCHLOROTHIAZIDE [Suspect]
     Active Substance: BISOPROLOL FUMARATE\HYDROCHLOROTHIAZIDE
     Indication: Secondary progressive multiple sclerosis
     Dosage: UNK
  11. ROSUVASTATIN CALCIUM [Suspect]
     Active Substance: ROSUVASTATIN CALCIUM
     Indication: Product used for unknown indication
     Dosage: 5 MILLIGRAM
  12. DOXEPIN HYDROCHLORIDE [Suspect]
     Active Substance: DOXEPIN HYDROCHLORIDE
     Indication: Product used for unknown indication
     Dosage: 6 MILLIGRAM
  13. AMLODIPINE BESYLATE\LISINOPRIL [Suspect]
     Active Substance: AMLODIPINE BESYLATE\LISINOPRIL
     Indication: Secondary progressive multiple sclerosis
     Dosage: 10 MILLIGRAM
  14. LORAZEPAM [Suspect]
     Active Substance: LORAZEPAM
     Indication: Product used for unknown indication
     Dosage: UNK
  15. LORAZEPAM [Suspect]
     Active Substance: LORAZEPAM
     Dosage: UNK
  16. MAYZENT [Suspect]
     Active Substance: SIPONIMOD
     Indication: Secondary progressive multiple sclerosis
     Dosage: UNK
  17. PRAMIPEXOLE [Suspect]
     Active Substance: PRAMIPEXOLE
     Indication: Secondary progressive multiple sclerosis
     Dosage: 0.25 MILLIGRAM
  18. RABEPRAZOLE [Suspect]
     Active Substance: RABEPRAZOLE
     Indication: Secondary progressive multiple sclerosis
     Dosage: 20 MILLIGRAM
  19. REBIF [Suspect]
     Active Substance: INTERFERON BETA-1A
     Indication: Product used for unknown indication
     Dosage: UNK
  20. ROSUVASTATIN CALCIUM [Suspect]
     Active Substance: ROSUVASTATIN CALCIUM
     Indication: Product used for unknown indication
     Dosage: 5 MILLIGRAM
  21. TAMSULOSIN [Suspect]
     Active Substance: TAMSULOSIN
     Indication: Secondary progressive multiple sclerosis
     Dosage: UNK
  22. LORAZEPAM [Suspect]
     Active Substance: LORAZEPAM
     Indication: Product used for unknown indication
     Dosage: UNK
  23. ALLOPURINOL [Concomitant]
     Active Substance: ALLOPURINOL
     Indication: Product used for unknown indication
     Dosage: 100 MILLIGRAM
  24. TECFIDERA [Suspect]
     Active Substance: DIMETHYL FUMARATE
     Indication: Product used for unknown indication
     Dosage: UNK
  25. VITAMIN D3 [Concomitant]
     Active Substance: CHOLECALCIFEROL
     Indication: Product used for unknown indication
     Dosage: UNK
  26. ASPIRIN [Concomitant]
     Active Substance: ASPIRIN
     Indication: Product used for unknown indication
     Dosage: UNK
  27. ATIVAN [Concomitant]
     Active Substance: LORAZEPAM
     Indication: Product used for unknown indication
     Dosage: 0.5 MILLIGRAM
  28. CALCIUM [Concomitant]
     Active Substance: CALCIUM
     Indication: Product used for unknown indication
     Dosage: UNK
  29. INDAPAMIDE\PERINDOPRIL [Concomitant]
     Active Substance: INDAPAMIDE\PERINDOPRIL
     Indication: Product used for unknown indication
     Dosage: 4 MILLIGRAM
  30. DALFAMPRIDINE [Concomitant]
     Active Substance: DALFAMPRIDINE
     Indication: Product used for unknown indication
     Dosage: 10 MILLIGRAM
  31. RABEPRAZOLE SODIUM [Concomitant]
     Active Substance: RABEPRAZOLE SODIUM
     Indication: Product used for unknown indication
     Dosage: UNK
  32. ASPIRIN [Concomitant]
     Active Substance: ASPIRIN
     Dosage: UNK
  33. Acetylsalicylic acid;Codeine [Concomitant]
     Dosage: 81 MILLIGRAM
  34. Allopurinol;Benzbromarone [Concomitant]
     Dosage: 100 MILLIGRAM
  35. PERINDOPRIL ARGININE [Concomitant]
     Active Substance: PERINDOPRIL ARGININE
     Dosage: 4 MILLIGRAM
  36. CYANOCOBALAMIN [Concomitant]
     Active Substance: CYANOCOBALAMIN
     Dosage: UNK
  37. INDAPAMIDE\PERINDOPRIL ERBUMINE [Concomitant]
     Active Substance: INDAPAMIDE\PERINDOPRIL ERBUMINE
     Dosage: 4 MILLIGRAM
  38. VITAMIN D3 [Concomitant]
     Active Substance: CHOLECALCIFEROL
     Dosage: UNK
  39. TEMAZEPAM [Suspect]
     Active Substance: TEMAZEPAM

REACTIONS (26)
  - Anxiety [Unknown]
  - Ataxia [Unknown]
  - Balance disorder [Unknown]
  - Central nervous system lesion [Unknown]
  - Relapsing-remitting multiple sclerosis [Unknown]
  - Dysarthria [Unknown]
  - Fall [Unknown]
  - Gait disturbance [Unknown]
  - Gait spastic [Unknown]
  - Hypertonic bladder [Unknown]
  - Hypoaesthesia [Unknown]
  - Memory impairment [Unknown]
  - Monoparesis [Unknown]
  - Movement disorder [Unknown]
  - Multiple sclerosis relapse [Unknown]
  - Muscle spasticity [Unknown]
  - Needle fatigue [Unknown]
  - Nocturia [Unknown]
  - Pain [Unknown]
  - Pollakiuria [Unknown]
  - Dizziness [Unknown]
  - Insomnia [Unknown]
  - Micturition urgency [Unknown]
  - Erectile dysfunction [Unknown]
  - Bradycardia [Unknown]
  - Product use in unapproved indication [Unknown]
